FAERS Safety Report 7622458-7 (Version None)
Quarter: 2011Q3

REPORT INFORMATION
  Report Type: 
  Country: None (occurrence: None)
  Receive Date: 20110720
  Receipt Date: 20110706
  Transmission Date: 20111222
  Serious: Yes (Hospitalization, Other)
  Sender: FDA-Public Use
  Company Number: TR-RANBAXY-2011RR-45494

PATIENT
  Age: 7 Year
  Sex: Female

DRUGS (2)
  1. PREDNISONE [Concomitant]
     Indication: PRODUCT USED FOR UNKNOWN INDICATION
     Dosage: 5 MG, UNK
     Route: 065
  2. CEFACLOR [Suspect]
     Indication: BRONCHITIS
     Route: 065

REACTIONS (5)
  - LINEAR IGA DISEASE [None]
  - SYSTEMIC LUPUS ERYTHEMATOSUS [None]
  - THROMBOCYTOSIS [None]
  - HAEMOLYTIC ANAEMIA [None]
  - AUTOIMMUNE THYROIDITIS [None]
